FAERS Safety Report 25586855 (Version 1)
Quarter: 2025Q3

REPORT INFORMATION
  Report Type: Spontaneous
  Country: US (occurrence: US)
  Receive Date: 20250721
  Receipt Date: 20250721
  Transmission Date: 20251020
  Serious: No
  Sender: Phathom Pharmaceuticals
  Company Number: US-PHATHOM PHARMACEUTICALS INC.-2025PHT01574

PATIENT
  Age: 71 Year
  Sex: Female

DRUGS (10)
  1. VOQUEZNA [Suspect]
     Active Substance: VONOPRAZAN FUMARATE
     Indication: Abdominal pain
     Dosage: 20 MG, 1X/DAY
     Route: 048
     Dates: start: 20250530, end: 20250613
  2. HERBALS\TURMERIC [Concomitant]
     Active Substance: HERBALS\TURMERIC
  3. VITAMIN C [Concomitant]
     Active Substance: ASCORBIC ACID
  4. VITAMIN D NOS [Concomitant]
     Active Substance: CHOLECALCIFEROL\ERGOCALCIFEROL
  5. ZINC [Concomitant]
     Active Substance: ZINC
  6. VITAMINS [Concomitant]
     Active Substance: VITAMINS
  7. MOMETASONE [Concomitant]
     Active Substance: MOMETASONE
  8. FAMOTIDINE [Concomitant]
     Active Substance: FAMOTIDINE
  9. RESTASIS [Concomitant]
     Active Substance: CYCLOSPORINE
  10. LEVOTHYROXINE [Concomitant]
     Active Substance: LEVOTHYROXINE

REACTIONS (9)
  - Migraine [Unknown]
  - Urinary tract infection [Unknown]
  - Blood pressure increased [Unknown]
  - Abdominal pain [Unknown]
  - Nausea [Unknown]
  - Dizziness [Unknown]
  - Dysgeusia [Unknown]
  - Fatigue [Unknown]
  - Off label use [Recovered/Resolved]

NARRATIVE: CASE EVENT DATE: 20250101
